FAERS Safety Report 6357707-9 (Version None)
Quarter: 2009Q3

REPORT INFORMATION
  Report Type: 
  Country: None (occurrence: None)
  Receive Date: 20090916
  Receipt Date: 20090914
  Transmission Date: 20100115
  Serious: Yes (Death, Other)
  Sender: FDA-Public Use
  Company Number: US-PFIZER INC-2009243115

PATIENT
  Age: 25 Year
  Sex: Female
  Weight: 54.431 kg

DRUGS (6)
  1. VFEND [Suspect]
     Indication: LEUKOPENIA
     Dosage: UNIT DOSE: UNKNOWN;
     Route: 042
     Dates: start: 20090710, end: 20090715
  2. VFEND [Suspect]
     Indication: PANCYTOPENIA
  3. ALLOPURINOL [Concomitant]
     Dosage: 300 MG, UNK
  4. TYLENOL (CAPLET) [Concomitant]
     Dosage: 650 MG, UNK
  5. ACICLOVIR [Concomitant]
     Dosage: 400 MG, 2X/DAY
     Route: 042
  6. CYTARABINE [Concomitant]
     Dosage: 4800 MG, 2X/DAY

REACTIONS (6)
  - CARDIOPULMONARY FAILURE [None]
  - DEATH [None]
  - HEPATIC FAILURE [None]
  - HEPATIC NECROSIS [None]
  - RENAL FAILURE [None]
  - SHOCK [None]
